FAERS Safety Report 17966114 (Version 15)
Quarter: 2022Q2

REPORT INFORMATION
  Report Type: Spontaneous
  Country: CA (occurrence: CA)
  Receive Date: 20200701
  Receipt Date: 20220406
  Transmission Date: 20220721
  Serious: Yes (Death, Hospitalization, Other)
  Sender: FDA-Public Use
  Company Number: CA-CELLTRION INC.-2020CA021794

PATIENT

DRUGS (22)
  1. INFLECTRA [Suspect]
     Active Substance: INFLIXIMAB-DYYB
     Indication: Rheumatoid arthritis
     Dosage: 400 MG, Q (EVERY) 6 WEEKS
     Route: 042
     Dates: start: 20190808
  2. INFLECTRA [Suspect]
     Active Substance: INFLIXIMAB-DYYB
     Indication: Colitis ulcerative
     Dosage: 400 MG, EVERY 8 WEEKS
     Route: 042
     Dates: start: 20190808
  3. INFLECTRA [Suspect]
     Active Substance: INFLIXIMAB-DYYB
     Dosage: 400 MG, Q (EVERY) 6 WEEKS
     Route: 042
     Dates: start: 20200305
  4. INFLECTRA [Suspect]
     Active Substance: INFLIXIMAB-DYYB
     Dosage: 400 MG, Q (EVERY) 6 WEEKS
     Route: 042
     Dates: start: 20200416
  5. INFLECTRA [Suspect]
     Active Substance: INFLIXIMAB-DYYB
     Dosage: 400 MG, Q (EVERY) 6 WEEKS
     Route: 042
     Dates: start: 20200527
  6. INFLECTRA [Suspect]
     Active Substance: INFLIXIMAB-DYYB
     Dosage: 400 MG, Q (EVERY) 6 WEEKS
     Route: 042
     Dates: start: 20200723
  7. INFLECTRA [Suspect]
     Active Substance: INFLIXIMAB-DYYB
     Dosage: 400 MG, Q (EVERY) 6 WEEKS
     Route: 042
     Dates: start: 20201022
  8. INFLECTRA [Suspect]
     Active Substance: INFLIXIMAB-DYYB
     Dosage: 400 MG, Q (EVERY) 6 WEEKS
     Route: 042
     Dates: start: 20201211
  9. INFLECTRA [Suspect]
     Active Substance: INFLIXIMAB-DYYB
     Dosage: 400 MG, Q (EVERY) 6 WEEKS
     Route: 042
     Dates: start: 20210121
  10. INFLECTRA [Suspect]
     Active Substance: INFLIXIMAB-DYYB
     Dosage: 400 MG, Q (EVERY) 6 WEEKS
     Route: 042
     Dates: start: 20210304
  11. INFLECTRA [Suspect]
     Active Substance: INFLIXIMAB-DYYB
     Dosage: 400 MG, EVERY 8 WEEKS
     Route: 042
     Dates: start: 20210528
  12. INFLECTRA [Suspect]
     Active Substance: INFLIXIMAB-DYYB
     Dosage: 400 MG, Q (EVERY) 6 WEEKS
     Route: 042
     Dates: start: 20210708
  13. INFLECTRA [Suspect]
     Active Substance: INFLIXIMAB-DYYB
     Dosage: 400 MG, Q (EVERY) 6 WEEKS
     Route: 042
     Dates: start: 20210708
  14. INFLECTRA [Suspect]
     Active Substance: INFLIXIMAB-DYYB
     Dosage: 400 MG, Q (EVERY) 6 WEEKS
     Route: 042
     Dates: start: 20210819
  15. INFLECTRA [Suspect]
     Active Substance: INFLIXIMAB-DYYB
     Dosage: 400 MG EVERY 6 WEEKS
     Route: 042
     Dates: start: 20220203
  16. AMLODIPINE [Concomitant]
     Active Substance: AMLODIPINE BESYLATE
     Indication: Hypertension
     Dosage: 5 MG, 1X/DAY
     Route: 048
  17. VITAMIN B12 [Concomitant]
     Active Substance: CYANOCOBALAMIN
     Dosage: UNK, 1X/DAY
     Route: 048
  18. CANDESARTAN [Concomitant]
     Active Substance: CANDESARTAN
     Indication: Hypertension
     Dosage: 4 MG, 1X/DAY
     Route: 048
  19. METHOTREXATE [Concomitant]
     Active Substance: METHOTREXATE
     Indication: Rheumatoid arthritis
     Dosage: 20 MG, WEEKLY
     Route: 048
  20. METHOTREXATE [Concomitant]
     Active Substance: METHOTREXATE
     Indication: Immunosuppressant drug therapy
     Dosage: UNK
  21. NITROGLYCERIN [Concomitant]
     Active Substance: NITROGLYCERIN
     Indication: Angina pectoris
     Dosage: UNK, AS NEEDED
     Route: 060
     Dates: start: 202003
  22. VITAMIN C [Concomitant]
     Active Substance: ASCORBIC ACID
     Dosage: UNK, 3X/DAY
     Route: 048

REACTIONS (17)
  - Death [Fatal]
  - Colon cancer [Recovered/Resolved]
  - Post procedural discharge [Not Recovered/Not Resolved]
  - Anaemia [Not Recovered/Not Resolved]
  - Haemoglobin decreased [Not Recovered/Not Resolved]
  - Faeces discoloured [Recovered/Resolved]
  - Dehiscence [Unknown]
  - Impaired healing [Not Recovered/Not Resolved]
  - Small intestine carcinoma [Unknown]
  - Lung neoplasm malignant [Unknown]
  - Vaginal cancer [Unknown]
  - Gastrointestinal carcinoma [Unknown]
  - Chest discomfort [Unknown]
  - Arthralgia [Unknown]
  - Diverticulum [Unknown]
  - Polyp [Unknown]
  - Off label use [Unknown]

NARRATIVE: CASE EVENT DATE: 20190808
